FAERS Safety Report 25485682 (Version 1)
Quarter: 2025Q2

REPORT INFORMATION
  Report Type: Spontaneous
  Country: US (occurrence: US)
  Receive Date: 20250626
  Receipt Date: 20250626
  Transmission Date: 20250717
  Serious: No
  Sender: GALDERMA
  Company Number: US-GALDERMA-US2025003782

PATIENT

DRUGS (2)
  1. NEMLUVIO [Suspect]
     Active Substance: NEMOLIZUMAB-ILTO
     Indication: Dermatitis atopic
     Route: 058
     Dates: start: 20250301, end: 20250301
  2. SERTRALINE [Concomitant]
     Active Substance: SERTRALINE HYDROCHLORIDE
     Indication: Depression

REACTIONS (6)
  - Skin exfoliation [Unknown]
  - Myalgia [Unknown]
  - Pain of skin [Unknown]
  - Muscle spasms [Unknown]
  - Skin atrophy [Unknown]
  - Erythema [Unknown]

NARRATIVE: CASE EVENT DATE: 20250301
